FAERS Safety Report 8214790-3 (Version None)
Quarter: 2012Q1

REPORT INFORMATION
  Report Type: 
  Country: None (occurrence: None)
  Receive Date: 20120316
  Receipt Date: 20120306
  Transmission Date: 20120608
  Serious: Yes (Hospitalization)
  Sender: FDA-Public Use
  Company Number: IT-BRISTOL-MYERS SQUIBB COMPANY-16438384

PATIENT
  Age: 78 Year
  Sex: Female

DRUGS (9)
  1. COUMADIN [Suspect]
     Indication: ATRIAL FIBRILLATION
     Dosage: 1DF=1 DOSE AS NEEDED
     Route: 048
     Dates: start: 20090101, end: 20120201
  2. LANSOPRAZOLE [Concomitant]
     Indication: PROPHYLAXIS AGAINST GASTROINTESTINAL ULCER
     Route: 048
  3. DESLORATADINE [Concomitant]
     Indication: RHINITIS ALLERGIC
     Route: 048
  4. ARCOXIA [Suspect]
     Indication: OSTEOARTHRITIS
     Dosage: 1 DF : 1 DOSE
     Route: 048
     Dates: start: 20090101, end: 20120201
  5. PAROXETINE HCL [Concomitant]
     Indication: DEPRESSION
     Route: 048
  6. LOVASTATIN [Concomitant]
     Route: 048
  7. ACECLOFENAC [Suspect]
     Indication: OSTEOARTHRITIS
     Route: 048
     Dates: start: 20090101, end: 20120201
  8. METFORMIN HCL [Concomitant]
     Indication: TYPE 2 DIABETES MELLITUS
     Route: 048
  9. VALSARTAN  AND HYDROCHLOROTHIAZIDE [Concomitant]
     Indication: MUSCULOSKELETAL PAIN
     Route: 048

REACTIONS (3)
  - ANAEMIA [None]
  - GASTRIC ULCER HAEMORRHAGE [None]
  - DRUG ABUSE [None]
